FAERS Safety Report 25749376 (Version 3)
Quarter: 2025Q4

REPORT INFORMATION
  Report Type: Spontaneous
  Country: US (occurrence: US)
  Receive Date: 20250902
  Receipt Date: 20251210
  Transmission Date: 20260117
  Serious: Yes (Hospitalization)
  Sender: KARYOPHARM THERAPEUTICS
  Company Number: US-KARYOPHARM-2025KPT100671

PATIENT

DRUGS (12)
  1. SELINEXOR [Suspect]
     Active Substance: SELINEXOR
     Indication: Plasma cell myeloma
     Dosage: 20 MG WEEKLY
     Route: 048
     Dates: end: 202508
  2. SELINEXOR [Suspect]
     Active Substance: SELINEXOR
     Dosage: 20 MG WEEKLY
     Route: 048
     Dates: start: 2025
  3. AMLODIPINE [Concomitant]
     Active Substance: AMLODIPINE BESYLATE
  4. ASPIRIN [Concomitant]
     Active Substance: ASPIRIN
  5. DEXAMETHASONE [Concomitant]
     Active Substance: DEXAMETHASONE
  6. FUROSEMIDE [Concomitant]
     Active Substance: FUROSEMIDE
  7. ISOSORBIDE DINITRATE [Concomitant]
     Active Substance: ISOSORBIDE DINITRATE
  8. LANTUS [Concomitant]
     Active Substance: INSULIN GLARGINE
  9. METOPROLOL [Concomitant]
     Active Substance: METOPROLOL
  10. PREGABALIN [Concomitant]
     Active Substance: PREGABALIN
  11. SIMVASTATIN [Concomitant]
     Active Substance: SIMVASTATIN
  12. XARELTO [Concomitant]
     Active Substance: RIVAROXABAN

REACTIONS (5)
  - Blood potassium increased [Unknown]
  - Dehydration [Unknown]
  - Diarrhoea [Unknown]
  - Cough [Unknown]
  - Product dose omission in error [Unknown]

NARRATIVE: CASE EVENT DATE: 20250829
